FAERS Safety Report 5150431-X (Version None)
Quarter: 2006Q4

REPORT INFORMATION
  Report Type: 
  Country: None (occurrence: None)
  Receive Date: 20061114
  Receipt Date: 20061027
  Transmission Date: 20070319
  Serious: Yes (Hospitalization)
  Sender: FDA-Public Use
  Company Number: BE-AMGEN-UK198459

PATIENT
  Sex: Male
  Weight: 71 kg

DRUGS (4)
  1. ARANESP [Suspect]
     Indication: ANAEMIA OF MALIGNANT DISEASE
     Route: 058
     Dates: start: 20050829, end: 20061002
  2. FLUDARABINE [Concomitant]
     Route: 042
     Dates: start: 20050829, end: 20051107
  3. RITUXIMAB [Concomitant]
     Route: 042
     Dates: start: 20050829, end: 20061002
  4. ACETYLCYSTEINE [Concomitant]
     Route: 048

REACTIONS (2)
  - ANAEMIA [None]
  - APLASIA PURE RED CELL [None]
